FAERS Safety Report 5143884-4 (Version None)
Quarter: 2006Q4

REPORT INFORMATION
  Report Type: 
  Country: None (occurrence: None)
  Receive Date: 20061102
  Receipt Date: 20061102
  Transmission Date: 20070319
  Serious: Yes (Life-Threatening, Hospitalization)
  Sender: FDA-Public Use
  Company Number: None

PATIENT
  Sex: Female
  Weight: 75 kg

DRUGS (2)
  1. ENOXAPARIN SODIUM [Suspect]
     Indication: AORTIC VALVE REPLACEMENT
     Dosage: 80 MG BID SQ
     Dates: start: 20060505, end: 20060512
  2. HEPARIN [Suspect]
     Dosage: SEE IMAGE
     Route: 042
     Dates: start: 20060504, end: 20060505

REACTIONS (4)
  - ACTIVATED PARTIAL THROMBOPLASTIN TIME PROLONGED [None]
  - CEREBROVASCULAR ACCIDENT [None]
  - PANCYTOPENIA [None]
  - SUBDURAL HAEMORRHAGE [None]
